FAERS Safety Report 4361919-3 (Version None)
Quarter: 2004Q2

REPORT INFORMATION
  Report Type: 
  Country: None (occurrence: None)
  Receive Date: 20040521
  Receipt Date: 20040202
  Transmission Date: 20050107
  Serious: No
  Sender: FDA-Public Use
  Company Number: US-GLAXOSMITHKLINE-A0496060A

PATIENT
  Age: 71 Year
  Sex: Male

DRUGS (8)
  1. WELLBUTRIN XL [Suspect]
     Indication: DEPRESSION
     Dosage: 150MG PER DAY
     Route: 048
  2. TOPROL-XL [Concomitant]
  3. NORVASC [Concomitant]
  4. ACCUPRIL [Concomitant]
  5. METFORMIN HCL [Concomitant]
  6. LIPITOR [Concomitant]
  7. AMARYL [Concomitant]
  8. XALATAN [Concomitant]

REACTIONS (1)
  - AGITATION [None]
